FAERS Safety Report 22333208 (Version 2)
Quarter: 2023Q2

REPORT INFORMATION
  Report Type: Other
  Country: MX (occurrence: None)
  Receive Date: 20230517
  Receipt Date: 20230601
  Transmission Date: 20230722
  Serious: Yes (Other)
  Sender: FDA-Public Use
  Company Number: MX-ROCHE-3335505

PATIENT
  Age: 44 Year
  Sex: Female
  Weight: 54 kg

DRUGS (1)
  1. POLIVY [Suspect]
     Active Substance: POLATUZUMAB VEDOTIN-PIIQ
     Indication: Diffuse large B-cell lymphoma
     Route: 042
     Dates: start: 20230411

REACTIONS (22)
  - Oropharyngeal discomfort [Recovered/Resolved]
  - Chest discomfort [Unknown]
  - Throat irritation [Unknown]
  - Arrhythmia [Not Recovered/Not Resolved]
  - Palpitations [Unknown]
  - Anxiety [Unknown]
  - Thinking abnormal [Unknown]
  - Stress [Unknown]
  - Anxiety [Unknown]
  - Social anxiety disorder [Unknown]
  - Tremor [Unknown]
  - Goitre [Unknown]
  - Apathy [Unknown]
  - Disturbance in attention [Unknown]
  - Emotional disorder [Unknown]
  - Heart rate increased [Unknown]
  - Palpitations [Unknown]
  - Discomfort [Unknown]
  - Fear [Unknown]
  - Insomnia [Unknown]
  - Intrusive thoughts [Unknown]
  - Nervousness [Unknown]

NARRATIVE: CASE EVENT DATE: 20230418
